FAERS Safety Report 16964666 (Version 1)
Quarter: 2019Q4

REPORT INFORMATION
  Report Type: Spontaneous
  Country: IT (occurrence: IT)
  Receive Date: 20191028
  Receipt Date: 20191028
  Transmission Date: 20200122
  Serious: Yes (Hospitalization)
  Sender: FDA-Public Use
  Company Number: IT-CHEPLA-C20192682

PATIENT
  Age: 58 Year
  Sex: Male

DRUGS (1)
  1. CITOVIRAX [Suspect]
     Active Substance: GANCICLOVIR
     Indication: CYTOMEGALOVIRUS INFECTION
     Route: 042
     Dates: start: 20181103, end: 20181115

REACTIONS (1)
  - Creatinine renal clearance increased [Unknown]

NARRATIVE: CASE EVENT DATE: 20181115
